FAERS Safety Report 4730569-9 (Version None)
Quarter: 2005Q3

REPORT INFORMATION
  Report Type: 
  Country: None (occurrence: None)
  Receive Date: 20050725
  Receipt Date: 20050316
  Transmission Date: 20060218
  Serious: No
  Sender: FDA-Public Use
  Company Number: USA050393332

PATIENT
  Age: 8 Year
  Sex: Male

DRUGS (4)
  1. STRATTERA [Suspect]
     Indication: ATTENTION DEFICIT/HYPERACTIVITY DISORDER
     Dosage: 60 MG DAY
     Dates: start: 20040501
  2. ZOLOFT [Concomitant]
  3. NEURONTIN [Concomitant]
  4. IMITREX [Concomitant]

REACTIONS (2)
  - ERYTHEMA [None]
  - MIGRAINE [None]
